FAERS Safety Report 6410623-6 (Version None)
Quarter: 2009Q4

REPORT INFORMATION
  Report Type: 
  Country: None (occurrence: None)
  Receive Date: 20091022
  Receipt Date: 20091013
  Transmission Date: 20100525
  Serious: Yes (Hospitalization)
  Sender: FDA-Public Use
  Company Number: US-BIOGENIDEC-2009BI033487

PATIENT
  Age: 52 Year
  Sex: Female

DRUGS (3)
  1. AVONEX [Suspect]
     Indication: MULTIPLE SCLEROSIS
     Route: 030
     Dates: start: 20080901, end: 20090913
  2. AVONEX [Suspect]
     Route: 030
  3. BACTRIM [Concomitant]

REACTIONS (3)
  - HEPATITIS [None]
  - HYPOTENSION [None]
  - PYREXIA [None]
